FAERS Safety Report 5867177-2 (Version None)
Quarter: 2008Q3

REPORT INFORMATION
  Report Type: 
  Country: None (occurrence: None)
  Receive Date: 20080902
  Receipt Date: 20080818
  Transmission Date: 20090109
  Serious: Yes (Hospitalization, Other)
  Sender: FDA-Public Use
  Company Number: US-BAYER-US-2007-019828

PATIENT
  Age: 27 Year
  Sex: Female
  Weight: 106 kg

DRUGS (29)
  1. BETASERON [Suspect]
     Indication: RELAPSING-REMITTING MULTIPLE SCLEROSIS
     Dosage: TOTAL DAILY DOSE: 8 MIU
     Route: 058
     Dates: start: 19980702, end: 20080420
  2. TYSABRI [Concomitant]
     Indication: MULTIPLE SCLEROSIS
     Dates: start: 20080519
  3. RESTASIS [Concomitant]
     Indication: DRY EYE
     Dates: start: 20040101
  4. PROAIR HFA [Concomitant]
     Indication: ASTHMA
     Dates: start: 20000101
  5. ALBUTEROL SULFATE [Concomitant]
     Indication: ASTHMA
     Dates: start: 20000101
  6. NASACORT AQ [Concomitant]
     Indication: MULTIPLE ALLERGIES
     Dosage: TOTAL DAILY DOSE: 2 DF
     Dates: start: 20000101
  7. ALLEGRA-D [Concomitant]
     Indication: MULTIPLE ALLERGIES
     Dates: start: 20000101
  8. MECLIZINE [Concomitant]
     Indication: MOTION SICKNESS
     Dates: start: 20070101
  9. TOPAMAX [Concomitant]
     Indication: MIGRAINE
     Dosage: TOTAL DAILY DOSE: 100 MG
     Dates: start: 19980101
  10. PREVACID [Concomitant]
     Indication: GASTROOESOPHAGEAL REFLUX DISEASE
     Dosage: TOTAL DAILY DOSE: 60 MG
     Dates: start: 19900101
  11. SINGULAIR [Concomitant]
     Indication: MULTIPLE ALLERGIES
     Dosage: TOTAL DAILY DOSE: 10 MG
     Dates: start: 20000101
  12. ZOLOFT [Concomitant]
     Indication: MIGRAINE
     Dosage: TOTAL DAILY DOSE: 100 MG
     Dates: start: 19950101
  13. ORPHENADRINE CITRATE [Concomitant]
     Indication: MULTIPLE SCLEROSIS
     Dosage: TOTAL DAILY DOSE: 200 MG
     Dates: start: 20070101
  14. NABUMETONE [Concomitant]
     Indication: MUSCLE SPASMS
     Dosage: TOTAL DAILY DOSE: 1500 MG
     Dates: start: 20070101
  15. PROMETHAZINE [Concomitant]
     Indication: NAUSEA
     Dates: start: 19950101
  16. ONCE-A-DAY [Concomitant]
     Indication: UNEVALUABLE EVENT
     Dates: start: 19950101
  17. AYR SALINE NASAL GEL [Concomitant]
     Indication: NASAL CONGESTION
     Dates: start: 20070101
  18. MICROGESTIN FE [Concomitant]
     Indication: MENSTRUAL DISORDER
     Dates: start: 19900101
  19. AXERT [Concomitant]
     Indication: MIGRAINE
     Dates: start: 20050101
  20. BACLOFEN [Concomitant]
     Indication: MUSCLE SPASTICITY
     Dosage: TOTAL DAILY DOSE: 10 MG
     Dates: start: 20010101
  21. LACLOTION [Concomitant]
     Indication: DRY SKIN
     Dosage: TOTAL DAILY DOSE: 12 %
     Dates: start: 20050101
  22. MOMETASONE FUROATE CREAM [Concomitant]
     Indication: DRY SKIN
     Dates: start: 20050101
  23. LIDODERM [Concomitant]
     Indication: PAIN
     Dates: start: 20040101
  24. RE ALLERGY AM+PM [Concomitant]
     Indication: MULTIPLE ALLERGIES
     Dosage: TOTAL DAILY DOSE: 16 MG
     Dates: start: 20060101
  25. PROPOXYPHENE-N 100 W/APAP 650 [Concomitant]
     Indication: PAIN
     Dates: start: 20030101
  26. CORTISPORIN [Concomitant]
     Indication: EAR PAIN
     Dates: start: 20070101
  27. FLOMAX [Concomitant]
     Indication: NEPHROLITHIASIS
     Dosage: TOTAL DAILY DOSE: 0.4 MG
     Dates: start: 20080101
  28. HYDROMORPHONE HCL [Concomitant]
     Indication: NEPHROLITHIASIS
     Dates: start: 20080101
  29. PHENAZOPYRIDINE PLUS [Concomitant]
     Indication: NEPHROLITHIASIS
     Dosage: TOTAL DAILY DOSE: 2 DF
     Dates: start: 20080101

REACTIONS (8)
  - DRUG HYPERSENSITIVITY [None]
  - INJECTION SITE HAEMATOMA [None]
  - INJECTION SITE INFECTION [None]
  - INJECTION SITE REACTION [None]
  - PSEUDOMONAS INFECTION [None]
  - PYREXIA [None]
  - RASH [None]
  - STAPHYLOCOCCAL INFECTION [None]
